FAERS Safety Report 15630343 (Version 2)
Quarter: 2019Q1

REPORT INFORMATION
  Report Type: Spontaneous
  Country: US (occurrence: US)
  Receive Date: 20181118
  Receipt Date: 20190321
  Transmission Date: 20190417
  Serious: Yes (Hospitalization)
  Sender: FDA-Public Use
  Company Number: US-PFIZER INC-2018471852

PATIENT
  Sex: Female
  Weight: 43 kg

DRUGS (1)
  1. PREMARIN [Suspect]
     Active Substance: ESTROGENS, CONJUGATED
     Indication: URINARY TRACT INFECTION
     Dosage: UNK
     Route: 067

REACTIONS (5)
  - Application site pain [Recovered/Resolved]
  - Wrong technique in product usage process [Recovered/Resolved]
  - Urinary tract infection [Unknown]
  - Product complaint [Unknown]
  - Product use in unapproved indication [Unknown]
